FAERS Safety Report 18580907 (Version 1)
Quarter: 2020Q4

REPORT INFORMATION
  Report Type: Spontaneous
  Country: KR (occurrence: KR)
  Receive Date: 20201204
  Receipt Date: 20201204
  Transmission Date: 20210114
  Serious: Yes (Life-Threatening, Hospitalization)
  Sender: FDA-Public Use
  Company Number: KR-SA-2020SA347281

PATIENT

DRUGS (3)
  1. TAXOTERE [Suspect]
     Active Substance: DOCETAXEL
     Indication: ADENOCARCINOMA GASTRIC
     Dosage: 107 MG/M2, Q3W
     Route: 042
     Dates: start: 20190402, end: 20200331
  2. IBRUTINIB [Suspect]
     Active Substance: IBRUTINIB
     Indication: ADENOCARCINOMA GASTRIC
     Dosage: 560 MG, QD
     Route: 048
     Dates: start: 20190402, end: 20190624
  3. TAXOTERE [Suspect]
     Active Substance: DOCETAXEL
     Dosage: 63 MG/M2, Q3W
     Route: 042
     Dates: start: 20200407, end: 20200407

REACTIONS (3)
  - Hypophagia [Recovered/Resolved]
  - Asthenia [Recovered/Resolved]
  - Abdominal pain [Recovered/Resolved]

NARRATIVE: CASE EVENT DATE: 20200331
